FAERS Safety Report 14227875 (Version 2)
Quarter: 2017Q4

REPORT INFORMATION
  Report Type: Spontaneous
  Country: ES (occurrence: ES)
  Receive Date: 20171127
  Receipt Date: 20171206
  Transmission Date: 20180321
  Serious: Yes (Other)
  Sender: FDA-Public Use
  Company Number: ES-JNJFOC-20171127573

PATIENT

DRUGS (5)
  1. AZATHIOPRINE. [Suspect]
     Active Substance: AZATHIOPRINE
     Indication: COLITIS ULCERATIVE
     Dosage: 2-2.5 MG/KG
     Route: 065
  2. CYCLOSPORINE. [Suspect]
     Active Substance: CYCLOSPORINE
     Indication: COLITIS ULCERATIVE
     Route: 048
  3. REMICADE [Suspect]
     Active Substance: INFLIXIMAB
     Indication: COLITIS ULCERATIVE
     Route: 042
  4. METHOTREXATE. [Concomitant]
     Active Substance: METHOTREXATE
     Indication: COLITIS ULCERATIVE
     Route: 065
  5. CYCLOSPORINE. [Suspect]
     Active Substance: CYCLOSPORINE
     Indication: COLITIS ULCERATIVE
     Route: 042

REACTIONS (29)
  - Cellulitis [Unknown]
  - Abdominal abscess [Unknown]
  - Hyperglycaemia [Unknown]
  - Post procedural haemorrhage [Unknown]
  - Folliculitis [Unknown]
  - Neutropenia [Unknown]
  - Klebsiella sepsis [Unknown]
  - Disseminated tuberculosis [Unknown]
  - Pneumonia [Unknown]
  - Herpes zoster [Unknown]
  - Paraesthesia [Unknown]
  - Pseudomonal sepsis [Unknown]
  - Listeria sepsis [Unknown]
  - Myalgia [Unknown]
  - Type IV hypersensitivity reaction [Unknown]
  - Salmonella sepsis [Unknown]
  - Urinary tract infection [Unknown]
  - Infusion related reaction [Unknown]
  - Demyelination [Unknown]
  - Pneumonia streptococcal [Unknown]
  - Pneumocystis jirovecii pneumonia [Unknown]
  - Hypertrichosis [Unknown]
  - Oropharyngeal candidiasis [Unknown]
  - Tonsillitis streptococcal [Unknown]
  - Sepsis [Unknown]
  - Cytomegalovirus colitis [Unknown]
  - Fungal infection [Unknown]
  - Device related sepsis [Unknown]
  - Clostridium difficile colitis [Unknown]
